FAERS Safety Report 21301826 (Version 1)
Quarter: 2022Q3

REPORT INFORMATION
  Report Type: Spontaneous
  Country: US (occurrence: None)
  Receive Date: 20220906
  Receipt Date: 20220906
  Transmission Date: 20221027
  Serious: Yes (Life-Threatening)
  Sender: FDA-Public Use
  Company Number: None

PATIENT
  Age: 63 Year
  Sex: Male
  Weight: 121.5 kg

DRUGS (4)
  1. TRESIBA [Suspect]
     Active Substance: INSULIN DEGLUDEC
     Indication: Type 2 diabetes mellitus
     Dosage: 60 IU INTERNATIONAL UNIT (S) DAILY SUBCUTANEOUS
     Route: 058
  2. LANTUS SOLOSTAR [Concomitant]
     Active Substance: INSULIN GLARGINE
     Dates: start: 20220211, end: 20220314
  3. metformin XR 750mg tablet [Concomitant]
     Dates: start: 20220211, end: 20220610
  4. SEMGLEE (INSULIN GLARGINE) [Suspect]
     Active Substance: INSULIN GLARGINE

REACTIONS (5)
  - Oropharyngeal pain [None]
  - Swollen tongue [None]
  - Therapy cessation [None]
  - Abdominal pain [None]
  - Tongue biting [None]

NARRATIVE: CASE EVENT DATE: 20220328
